FAERS Safety Report 24138792 (Version 1)
Quarter: 2024Q3

REPORT INFORMATION
  Report Type: Spontaneous
  Country: CA (occurrence: CA)
  Receive Date: 20240725
  Receipt Date: 20240725
  Transmission Date: 20241017
  Serious: Yes (Life-Threatening, Other)
  Sender: Haleon PLC
  Company Number: CA-HALEON-2188454

PATIENT
  Age: 73 Year
  Sex: Male
  Weight: 88.451 kg

DRUGS (2)
  1. ADVIL COLD AND SINUS [Suspect]
     Active Substance: IBUPROFEN\PSEUDOEPHEDRINE HYDROCHLORIDE
     Indication: Rhinorrhoea
     Dosage: TIME INTERVAL: TOTAL
     Route: 048
  2. ADVIL COLD AND SINUS [Suspect]
     Active Substance: IBUPROFEN\PSEUDOEPHEDRINE HYDROCHLORIDE
     Indication: Nasopharyngitis

REACTIONS (4)
  - Rib fracture [Recovered/Resolved]
  - Sternal fracture [Recovered/Resolved]
  - Road traffic accident [Recovered/Resolved]
  - Sudden onset of sleep [Recovered/Resolved]
